FAERS Safety Report 4330439-4 (Version None)
Quarter: 2004Q1

REPORT INFORMATION
  Report Type: 
  Country: None (occurrence: None)
  Receive Date: 20040329
  Receipt Date: 20040315
  Transmission Date: 20041129
  Serious: Yes (Hospitalization)
  Sender: FDA-Public Use
  Company Number: 205292

PATIENT
  Age: 64 Year
  Sex: Female

DRUGS (8)
  1. HERCEPTIN [Suspect]
     Indication: BREAST CANCER
     Dosage: SEE IMAGE
     Route: 042
     Dates: start: 20031030, end: 20031030
  2. HERCEPTIN [Suspect]
     Indication: BREAST CANCER
     Dosage: SEE IMAGE
     Route: 042
     Dates: start: 20031115
  3. DOXORUBICIN HCL [Suspect]
     Indication: BREAST CANCER
     Dosage: INTRAVENOUS
     Route: 042
     Dates: start: 20031009
  4. CYCLOPHOSPHAMIDE [Suspect]
     Indication: BREAST CANCER
     Dosage: 1128 MG, Q3W, INTRAVENOUS
     Route: 042
     Dates: start: 20031009
  5. DOCETAXEL (DEOCETAXEL) [Suspect]
     Indication: BREAST CANCER
     Dosage: 600 MG/KG, Q2W, INTRAVENOUS
     Route: 042
     Dates: start: 20031031
  6. ZOFRAN [Concomitant]
  7. DEXAMETHASONE [Concomitant]
  8. BIFITERAL (LACTUILOSE) [Concomitant]

REACTIONS (2)
  - DYSAESTHESIA [None]
  - SIMPLE PARTIAL SEIZURES [None]
